FAERS Safety Report 12854268 (Version 1)
Quarter: 2016Q4

REPORT INFORMATION
  Report Type: Spontaneous
  Country: US (occurrence: US)
  Receive Date: 20161017
  Receipt Date: 20161017
  Transmission Date: 20170207
  Serious: Yes (Other)
  Sender: FDA-Public Use
  Company Number: US-ELI_LILLY_AND_COMPANY-US201610002698

PATIENT
  Sex: Female

DRUGS (2)
  1. METHIMAZOLE. [Concomitant]
     Active Substance: METHIMAZOLE
     Dosage: UNK, UNKNOWN
     Route: 065
  2. CYMBALTA [Suspect]
     Active Substance: DULOXETINE HYDROCHLORIDE
     Indication: FIBROMYALGIA
     Dosage: 20 MG, TID
     Route: 065
     Dates: start: 2013

REACTIONS (6)
  - Hypoaesthesia [Recovered/Resolved]
  - Hallucination [Recovered/Resolved]
  - Suicidal ideation [Recovered/Resolved]
  - Paraesthesia [Recovered/Resolved]
  - Drug withdrawal syndrome [Recovered/Resolved]
  - Gastrointestinal disorder [Recovered/Resolved]
